FAERS Safety Report 5321940-5 (Version None)
Quarter: 2007Q2

REPORT INFORMATION
  Report Type: 
  Country: None (occurrence: None)
  Receive Date: 20070511
  Receipt Date: 20070507
  Transmission Date: 20071010
  Serious: Yes (Other)
  Sender: FDA-Public Use
  Company Number: PHNU2007DE01336

PATIENT
  Age: 62 Year
  Sex: Female
  Weight: 62 kg

DRUGS (3)
  1. EXFORGE [Suspect]
     Indication: HYPERTENSION
     Dosage: 1 DF, QD
     Route: 048
     Dates: start: 20070221, end: 20070320
  2. METOPROLOL SUCCINATE [Concomitant]
     Indication: HYPERTENSION
     Dosage: 95 MG/D
  3. INSIDON [Concomitant]
     Indication: ANXIETY DISORDER
     Dosage: 50 MG/D
     Route: 048

REACTIONS (3)
  - ATRIAL FIBRILLATION [None]
  - HYPOKALAEMIA [None]
  - OEDEMA PERIPHERAL [None]
